FAERS Safety Report 21545982 (Version 1)
Quarter: 2022Q4

REPORT INFORMATION
  Report Type: Spontaneous
  Country: US (occurrence: None)
  Receive Date: 20221103
  Receipt Date: 20221103
  Transmission Date: 20230112
  Serious: Yes (Other)
  Sender: FDA-Public Use
  Company Number: US-FARMAPROD-202207-1437

PATIENT
  Age: 67 Year
  Sex: Female

DRUGS (19)
  1. OXERVATE [Suspect]
     Active Substance: CENEGERMIN-BKBJ
     Indication: Neurotrophic keratopathy
     Route: 047
     Dates: start: 20220705, end: 20221016
  2. LASIX [Concomitant]
     Active Substance: FUROSEMIDE
  3. RESTASIS [Concomitant]
     Active Substance: CYCLOSPORINE
  4. PANTOPRAZOLE SODIUM [Concomitant]
     Active Substance: PANTOPRAZOLE SODIUM
  5. TRAZODONE HCL [Concomitant]
     Active Substance: TRAZODONE HYDROCHLORIDE
  6. CELECOXIB [Concomitant]
     Active Substance: CELECOXIB
  7. LITHIUM CARBONATE [Concomitant]
     Active Substance: LITHIUM CARBONATE
  8. LAMOTRIGINE [Concomitant]
     Active Substance: LAMOTRIGINE
  9. INGREZZA [Concomitant]
     Active Substance: VALBENAZINE
  10. GABAPENTIN [Concomitant]
     Active Substance: GABAPENTIN
  11. FAMOTIDINE [Concomitant]
     Active Substance: FAMOTIDINE
  12. ESCITALOPRAM OXALATE [Concomitant]
     Active Substance: ESCITALOPRAM OXALATE
  13. BENZONATATE [Concomitant]
     Active Substance: BENZONATATE
  14. LEVOTHYROXINE [Concomitant]
     Active Substance: LEVOTHYROXINE
  15. VITAMIN C [Concomitant]
     Active Substance: ASCORBIC ACID
  16. METHOCARBAMOL [Concomitant]
     Active Substance: METHOCARBAMOL
  17. ONDANSETRON HCL [Concomitant]
     Active Substance: ONDANSETRON HYDROCHLORIDE
  18. LEVOTHYROXINE [Concomitant]
     Active Substance: LEVOTHYROXINE
  19. ATORVASTATIN CALCIUM [Concomitant]
     Active Substance: ATORVASTATIN CALCIUM

REACTIONS (8)
  - Shoulder operation [Unknown]
  - Dry skin [Unknown]
  - Wrong technique in product usage process [Unknown]
  - Product dose omission issue [Unknown]
  - Eyelid pain [Unknown]
  - Photophobia [Unknown]
  - Dry eye [Unknown]
  - Eyelid margin crusting [Unknown]

NARRATIVE: CASE EVENT DATE: 20221018
